FAERS Safety Report 6421601-5 (Version None)
Quarter: 2009Q4

REPORT INFORMATION
  Report Type: 
  Country: None (occurrence: None)
  Receive Date: 20091029
  Receipt Date: 20091029
  Transmission Date: 20100525
  Serious: No
  Sender: FDA-Public Use
  Company Number: None

PATIENT
  Age: 45 Year
  Sex: Female

DRUGS (1)
  1. WARFARIN SODIUM [Suspect]
     Indication: PULMONARY EMBOLISM
     Dosage: 5MG PO
     Route: 048
     Dates: start: 20090809, end: 20091028

REACTIONS (2)
  - PRODUCT SUBSTITUTION ISSUE [None]
  - PROTHROMBIN TIME PROLONGED [None]
